FAERS Safety Report 9891659 (Version 1)
Quarter: 2014Q1

REPORT INFORMATION
  Report Type: Report from Study
  Country: IN (occurrence: IN)
  Receive Date: 20140212
  Receipt Date: 20140212
  Transmission Date: 20141002
  Serious: Yes (Other)
  Sender: FDA-Public Use
  Company Number: PHHY2014IN014198

PATIENT
  Age: 68 Year
  Sex: Female
  Weight: 73 kg

DRUGS (2)
  1. EXELON PATCH [Suspect]
     Indication: DEMENTIA ALZHEIMER^S TYPE
     Dosage: 4.6 MG, PER 24 HOURS
     Route: 062
     Dates: start: 20131127
  2. ELKAR [Concomitant]
     Dosage: UNK UKN, UNK
     Route: 048
     Dates: start: 20131127

REACTIONS (3)
  - Diabetes mellitus [Unknown]
  - Application site hypersensitivity [Not Recovered/Not Resolved]
  - Application site irritation [Not Recovered/Not Resolved]
